FAERS Safety Report 4822958-9 (Version None)
Quarter: 2005Q4

REPORT INFORMATION
  Report Type: 
  Country: None (occurrence: None)
  Receive Date: 20051108
  Receipt Date: 20050720
  Transmission Date: 20060501
  Serious: Yes (Hospitalization)
  Sender: FDA-Public Use
  Company Number: HQWYE411222JUL05

PATIENT
  Sex: Female

DRUGS (7)
  1. ENBREL [Suspect]
     Indication: RHEUMATOID ARTHRITIS
     Route: 058
     Dates: start: 20050513, end: 20050715
  2. PREDONINE [Suspect]
     Indication: RHEUMATOID ARTHRITIS
     Route: 048
  3. INDOMETHACIN [Concomitant]
  4. LANSOPRAZOLE [Concomitant]
  5. NORVASC [Concomitant]
  6. INSULIN HUMAN [Concomitant]
  7. METFORMIN HCL [Concomitant]

REACTIONS (1)
  - ENTEROCOLITIS [None]
